FAERS Safety Report 9972330 (Version 1)
Quarter: 2014Q1

REPORT INFORMATION
  Report Type: Spontaneous
  Country: US (occurrence: None)
  Receive Date: 20140305
  Receipt Date: 20140305
  Transmission Date: 20141002
  Serious: Yes (Hospitalization)
  Sender: FDA-Public Use
  Company Number: None

PATIENT
  Age: 67 Year
  Sex: Female

DRUGS (1)
  1. GLYBURIDE [Suspect]

REACTIONS (3)
  - Hypoglycaemia [None]
  - Mental status changes [None]
  - Unresponsive to stimuli [None]
